FAERS Safety Report 14254453 (Version 4)
Quarter: 2018Q2

REPORT INFORMATION
  Report Type: Spontaneous
  Country: US (occurrence: US)
  Receive Date: 20171206
  Receipt Date: 20180607
  Transmission Date: 20180711
  Serious: Yes (Other)
  Sender: FDA-Public Use
  Company Number: US-PFIZER INC-2017518376

PATIENT
  Age: 54 Year
  Sex: Female
  Weight: 58.96 kg

DRUGS (2)
  1. PREMPRO [Suspect]
     Active Substance: ESTROGENS, CONJUGATED\MEDROXYPROGESTERONE ACETATE
     Dosage: 1 DF, 1X/DAY [0.3MG/1.5MG TABLETS-1 TABLET TAKEN BY MOUTH DAILY IN THE MORNING]
     Route: 048
     Dates: end: 201805
  2. PREMPRO [Suspect]
     Active Substance: ESTROGENS, CONJUGATED\MEDROXYPROGESTERONE ACETATE
     Indication: MENOPAUSE
     Dosage: 0.3MG/1.5MG, 1X/DAY
     Route: 048
     Dates: start: 2014

REACTIONS (10)
  - Breast disorder [Not Recovered/Not Resolved]
  - Breast cyst [Unknown]
  - Emotional disorder [Recovered/Resolved]
  - Acne [Recovering/Resolving]
  - Palpitations [Unknown]
  - Breast cancer [Unknown]
  - Crying [Recovered/Resolved]
  - Breast pain [Not Recovered/Not Resolved]
  - Scar [Unknown]
  - Breast mass [Unknown]

NARRATIVE: CASE EVENT DATE: 2016
